FAERS Safety Report 14425781 (Version 2)
Quarter: 2018Q1

REPORT INFORMATION
  Report Type: Report from Study
  Country: US (occurrence: US)
  Receive Date: 20180123
  Receipt Date: 20180226
  Transmission Date: 20180509
  Serious: Yes (Hospitalization)
  Sender: FDA-Public Use
  Company Number: US-EISAI MEDICAL RESEARCH-EC-2017-034390

PATIENT
  Age: 56 Year
  Sex: Male
  Weight: 119.2 kg

DRUGS (14)
  1. AMLODIPINE [Concomitant]
     Active Substance: AMLODIPINE BESYLATE
  2. GUAIFENESIN. [Concomitant]
     Active Substance: GUAIFENESIN
  3. LENVATINIB [Suspect]
     Active Substance: LENVATINIB
     Indication: PAPILLARY THYROID CANCER
     Dosage: BLINDED DOSAGE
     Route: 048
     Dates: start: 20170831
  4. ALPRAZOLAM. [Concomitant]
     Active Substance: ALPRAZOLAM
  5. ATORVASTATIN [Concomitant]
     Active Substance: ATORVASTATIN
  6. FAMOTIDINE. [Concomitant]
     Active Substance: FAMOTIDINE
  7. HCTZ [Concomitant]
     Active Substance: HYDROCHLOROTHIAZIDE
  8. LEVOTHYROXINE. [Concomitant]
     Active Substance: LEVOTHYROXINE
  9. PHENYLEPHRIN [Concomitant]
     Active Substance: PHENYLEPHRINE HYDROCHLORIDE
  10. CALCIUM CARBONATE. [Concomitant]
     Active Substance: CALCIUM CARBONATE
  11. ENOXAPARIN [Concomitant]
     Active Substance: ENOXAPARIN
  12. LISINOPRIL. [Concomitant]
     Active Substance: LISINOPRIL
  13. OXYCODONE-ACETAMINOPHEN [Concomitant]
     Active Substance: ACETAMINOPHEN\OXYCODONE HYDROCHLORIDE
  14. LORATADINE. [Concomitant]
     Active Substance: LORATADINE

REACTIONS (2)
  - Pancreatitis [Recovered/Resolved]
  - Syncope [Recovered/Resolved]

NARRATIVE: CASE EVENT DATE: 20171218
